FAERS Safety Report 8492120-X (Version None)
Quarter: 2012Q3

REPORT INFORMATION
  Report Type: 
  Country: None (occurrence: None)
  Receive Date: 20120706
  Receipt Date: 20120621
  Transmission Date: 20120928
  Serious: Yes (Hospitalization)
  Sender: FDA-Public Use
  Company Number: AR-AMGEN-QUU422978

PATIENT
  Age: 58 Year
  Sex: Female
  Weight: 68 kg

DRUGS (5)
  1. DELTISONA B [Concomitant]
     Dosage: 4 MG, QD
  2. CALCIUM [Concomitant]
     Dosage: UNK UNK, UNK
     Route: 065
  3. METHOTREXATE [Concomitant]
     Dosage: UNK UNK, UNK
     Route: 065
  4. ENBREL [Suspect]
     Indication: RHEUMATOID ARTHRITIS
     Dosage: 25 MG, 2 TIMES/WK
     Route: 058
     Dates: start: 20091219, end: 20100410
  5. THIOCTIC ACID [Concomitant]
     Dosage: 300 MG, QID
     Route: 048

REACTIONS (3)
  - ARTHRITIS BACTERIAL [None]
  - OSTEOMYELITIS CHRONIC [None]
  - OSTEOMYELITIS [None]
